FAERS Safety Report 8166611-5 (Version None)
Quarter: 2012Q1

REPORT INFORMATION
  Report Type: 
  Country: None (occurrence: None)
  Receive Date: 20120227
  Receipt Date: 20120215
  Transmission Date: 20120608
  Serious: Yes (Life-Threatening)
  Sender: FDA-Public Use
  Company Number: US-SANOFI-AVENTIS-2012SA010649

PATIENT
  Age: 50 Year
  Sex: Male

DRUGS (11)
  1. ELOXATIN [Suspect]
     Indication: COLORECTAL CANCER
     Route: 041
     Dates: start: 20110913, end: 20110913
  2. ELOXATIN [Suspect]
     Route: 041
     Dates: start: 20120104, end: 20120104
  3. ELOXATIN [Suspect]
     Route: 041
     Dates: start: 20120201, end: 20120201
  4. ELOXATIN [Suspect]
     Route: 041
     Dates: start: 20111122, end: 20111122
  5. ELOXATIN [Suspect]
     Route: 041
     Dates: start: 20111012, end: 20111012
  6. ELOXATIN [Suspect]
     Route: 041
     Dates: start: 20111109, end: 20111109
  7. ELOXATIN [Suspect]
     Route: 041
     Dates: start: 20111207, end: 20111207
  8. ELOXATIN [Suspect]
     Route: 041
     Dates: start: 20111221, end: 20111221
  9. ELOXATIN [Suspect]
     Route: 041
     Dates: start: 20120118, end: 20120118
  10. ELOXATIN [Suspect]
     Route: 041
     Dates: start: 20111026, end: 20111026
  11. ELOXATIN [Suspect]
     Route: 041
     Dates: start: 20110928, end: 20110928

REACTIONS (2)
  - APPARENT DEATH [None]
  - RESPIRATORY FAILURE [None]
